FAERS Safety Report 6307336-8 (Version None)
Quarter: 2009Q3

REPORT INFORMATION
  Report Type: 
  Country: None (occurrence: None)
  Receive Date: 20090813
  Receipt Date: 20090803
  Transmission Date: 20100115
  Serious: Yes (Hospitalization)
  Sender: FDA-Public Use
  Company Number: AT-JNJFOC-20090800821

PATIENT
  Age: 59 Year
  Sex: Female

DRUGS (4)
  1. REMICADE [Suspect]
     Indication: DRUG USE FOR UNKNOWN INDICATION
     Route: 042
  2. FOSAMAX [Concomitant]
  3. PANTOPRAZOLE SODIUM [Concomitant]
  4. VOLTAREN [Concomitant]

REACTIONS (1)
  - MENINGITIS TUBERCULOUS [None]
